FAERS Safety Report 8351005-X (Version None)
Quarter: 2012Q2

REPORT INFORMATION
  Report Type: 
  Country: None (occurrence: None)
  Receive Date: 20120510
  Receipt Date: 20120507
  Transmission Date: 20120825
  Serious: Yes (Other)
  Sender: FDA-Public Use
  Company Number: US-TEVA-337073USA

PATIENT
  Age: 6 Month
  Sex: Male

DRUGS (1)
  1. RANITIDINE [Suspect]
     Indication: GASTROOESOPHAGEAL REFLUX DISEASE
     Dosage: 15 MG/ML ELIXIR, 1.5 TEASPOONS BID
     Route: 048

REACTIONS (7)
  - POOR QUALITY SLEEP [None]
  - NEUROTOXICITY [None]
  - HEAD TITUBATION [None]
  - DRUG PRESCRIBING ERROR [None]
  - RESTLESSNESS [None]
  - ACCIDENTAL OVERDOSE [None]
  - TREMOR [None]
